FAERS Safety Report 16316856 (Version 1)
Quarter: 2019Q2

REPORT INFORMATION
  Report Type: Spontaneous
  Country: PH (occurrence: PH)
  Receive Date: 20190515
  Receipt Date: 20190515
  Transmission Date: 20190711
  Serious: Yes (Other)
  Sender: FDA-Public Use
  Company Number: PHHY2019PH107249

PATIENT
  Age: 60 Year
  Sex: Male

DRUGS (1)
  1. LOSARTAN. [Suspect]
     Active Substance: LOSARTAN
     Indication: PRODUCT USED FOR UNKNOWN INDICATION
     Route: 065

REACTIONS (6)
  - Cerebral infarction [Unknown]
  - Hypoaesthesia [Unknown]
  - Diplopia [Unknown]
  - Dysarthria [Recovering/Resolving]
  - Hemiparesis [Unknown]
  - Headache [Unknown]
